FAERS Safety Report 9117289 (Version 1)
Quarter: 2013Q1

REPORT INFORMATION
  Report Type: Spontaneous
  Country: ES (occurrence: ES)
  Receive Date: 20130208
  Receipt Date: 20130208
  Transmission Date: 20140127
  Serious: Yes (Hospitalization)
  Sender: FDA-Public Use
  Company Number: ES-JNJFOC-20130201071

PATIENT
  Age: 36 Year
  Sex: Female

DRUGS (2)
  1. PAZITAL [Suspect]
     Indication: MUSCLE CONTRACTURE
     Route: 048
     Dates: start: 20121105, end: 20121109
  2. TIZANIDINE HYDROCHLORIDE [Suspect]
     Indication: MUSCLE CONTRACTURE
     Route: 048
     Dates: start: 20121105

REACTIONS (1)
  - Loss of consciousness [Recovered/Resolved]
